FAERS Safety Report 7271036-0 (Version None)
Quarter: 2011Q1

REPORT INFORMATION
  Report Type: 
  Country: None (occurrence: None)
  Receive Date: 20110202
  Receipt Date: 20110124
  Transmission Date: 20110831
  Serious: Yes (Hospitalization)
  Sender: FDA-Public Use
  Company Number: DE-ASTRAZENECA-2011SE04838

PATIENT
  Age: 66 Year
  Sex: Male

DRUGS (3)
  1. QUETIAPINE FUMARATE [Suspect]
     Route: 048
  2. MIRTAZAPINE [Interacting]
     Route: 065
  3. TREVILOR RETARD [Interacting]
     Route: 048

REACTIONS (3)
  - PARAESTHESIA [None]
  - DRUG INTERACTION [None]
  - HYPERACUSIS [None]
